FAERS Safety Report 11392490 (Version 2)
Quarter: 2015Q3

REPORT INFORMATION
  Report Type: Report from Study
  Country: BR (occurrence: BR)
  Receive Date: 20150818
  Receipt Date: 20150915
  Transmission Date: 20151125
  Serious: Yes (Other)
  Sender: FDA-Public Use
  Company Number: PHHY2015BR095173

PATIENT
  Age: 59 Year
  Sex: Female
  Weight: 66 kg

DRUGS (7)
  1. VALSARTAN. [Suspect]
     Active Substance: VALSARTAN
     Indication: HYPERTENSION
     Dosage: 320 MG, QD
     Route: 048
     Dates: start: 20150709
  2. HIDROMED [Concomitant]
     Active Substance: HYDROCHLOROTHIAZIDE
     Indication: POLYURIA
     Dosage: 1 DF, QD
     Route: 048
  3. RASILEZ [Suspect]
     Active Substance: ALISKIREN
     Indication: HYPERTENSION
     Dosage: 300 MG, QD
     Route: 048
  4. HYDRALAZINE [Suspect]
     Active Substance: HYDRALAZINE HYDROCHLORIDE
     Indication: HYPERTENSION
     Dosage: 1 DF, QD
     Route: 048
     Dates: start: 20150709
  5. SELOZOK [Suspect]
     Active Substance: METOPROLOL SUCCINATE
     Indication: HYPERTENSION
     Dosage: 100 MG, QD
     Route: 048
     Dates: start: 20150708, end: 20150803
  6. MICARD [Suspect]
     Active Substance: NICARDIPINE HYDROCHLORIDE
     Indication: HYPERTENSION
     Dosage: 1 DF (80 MG), QD
     Route: 048
     Dates: end: 20150708
  7. HYPERIUM [Concomitant]
     Active Substance: RILMENIDINE PHOSPHATE
     Indication: HYPERTENSION
     Dosage: 1 DF, QD
     Route: 048
     Dates: start: 20150709

REACTIONS (18)
  - Hypertension [Recovered/Resolved]
  - Musculoskeletal stiffness [Recovered/Resolved]
  - Vomiting [Recovered/Resolved]
  - Cerebrovascular accident [Recovered/Resolved]
  - Choking [Recovered/Resolved]
  - Headache [Recovered/Resolved]
  - Dyspnoea [Recovered/Resolved]
  - Neck pain [Recovered/Resolved]
  - Fatigue [Recovered/Resolved]
  - Tremor [Recovered/Resolved]
  - Blood pressure decreased [Recovered/Resolved]
  - Heart rate increased [Not Recovered/Not Resolved]
  - Drug ineffective [Unknown]
  - Asphyxia [Recovering/Resolving]
  - Bronchitis [Recovered/Resolved]
  - Aortic disorder [Recovered/Resolved]
  - Fatigue [Recovered/Resolved]
  - Rhinitis [Recovered/Resolved]

NARRATIVE: CASE EVENT DATE: 201507
